FAERS Safety Report 16238296 (Version 2)
Quarter: 2019Q2

REPORT INFORMATION
  Report Type: Spontaneous
  Country: US (occurrence: US)
  Receive Date: 20190425
  Receipt Date: 20190507
  Transmission Date: 20190711
  Serious: Yes (Other)
  Sender: FDA-Public Use
  Company Number: US-BAYER-2019-078220

PATIENT
  Age: 32 Year
  Sex: Female

DRUGS (1)
  1. KYLEENA [Suspect]
     Active Substance: LEVONORGESTREL
     Indication: CONTRACEPTION
     Dosage: 17.5 MCG/24HR, CONT
     Route: 015
     Dates: start: 20190227, end: 20190425

REACTIONS (9)
  - Acne [None]
  - Fluid retention [None]
  - Abdominal pain [None]
  - Pelvic discomfort [None]
  - Staphylococcal infection [None]
  - Abdominal discomfort [None]
  - Swelling [None]
  - Weight increased [None]
  - Genital haemorrhage [None]

NARRATIVE: CASE EVENT DATE: 2019
